FAERS Safety Report 7572178-2 (Version None)
Quarter: 2011Q2

REPORT INFORMATION
  Report Type: 
  Country: None (occurrence: None)
  Receive Date: 20110624
  Receipt Date: 20110610
  Transmission Date: 20111010
  Serious: Yes (Other)
  Sender: FDA-Public Use
  Company Number: PHHY2011BR52420

PATIENT
  Age: 8 Year
  Sex: Male

DRUGS (2)
  1. TEGRETOL [Suspect]
     Indication: CONVULSION
     Dosage: 100 ML, UNK
     Route: 048
  2. CARBAMAZEPINE [Suspect]
     Indication: CONVULSION
     Dosage: 5ML BID (MORNING AND NIGHT)
     Route: 048

REACTIONS (4)
  - CONVULSION [None]
  - METABOLIC DISORDER [None]
  - BLOOD UREA ABNORMAL [None]
  - STRESS [None]
